FAERS Safety Report 9867882 (Version 2)
Quarter: 2014Q1

REPORT INFORMATION
  Report Type: Report from Study
  Country: US (occurrence: US)
  Receive Date: 20140204
  Receipt Date: 20140204
  Transmission Date: 20141002
  Serious: Yes (Other)
  Sender: FDA-Public Use
  Company Number: US-ABBVIE-13P-163-1137047-00

PATIENT
  Sex: Female

DRUGS (2)
  1. HUMIRA [Suspect]
     Indication: PSORIATIC ARTHROPATHY
     Dates: start: 201304
  2. HUMIRA [Suspect]
     Dates: start: 201307

REACTIONS (6)
  - Dacryoadenitis acquired [Recovering/Resolving]
  - Dacryoadenitis acquired [Recovering/Resolving]
  - Autoimmune disorder [Recovering/Resolving]
  - Sjogren^s syndrome [Unknown]
  - Injection site vesicles [Unknown]
  - Incorrect dose administered [Unknown]
